FAERS Safety Report 4320191-0 (Version None)
Quarter: 2004Q1

REPORT INFORMATION
  Report Type: 
  Country: None (occurrence: None)
  Receive Date: 20040317
  Receipt Date: 20040305
  Transmission Date: 20041129
  Serious: Yes (Death)
  Sender: FDA-Public Use
  Company Number: US-JNJFOC-20040301567

PATIENT
  Age: 73 Year
  Sex: Female
  Weight: 52.1637 kg

DRUGS (11)
  1. REMICADE [Suspect]
     Indication: ANKYLOSING SPONDYLITIS
     Dosage: 500 MG, INTRAVENOUS
     Route: 042
     Dates: start: 20010501
  2. REMICADE [Suspect]
     Indication: RHEUMATOID ARTHRITIS
     Dosage: 500 MG, INTRAVENOUS
     Route: 042
     Dates: start: 20010501
  3. REMICADE [Suspect]
     Indication: UVEITIS
     Dosage: 500 MG, INTRAVENOUS
     Route: 042
     Dates: start: 20010501
  4. REMICADE [Suspect]
     Indication: ANKYLOSING SPONDYLITIS
     Dosage: 500 MG, INTRAVENOUS
     Route: 042
     Dates: start: 20040211
  5. REMICADE [Suspect]
     Indication: RHEUMATOID ARTHRITIS
     Dosage: 500 MG, INTRAVENOUS
     Route: 042
     Dates: start: 20040211
  6. REMICADE [Suspect]
     Indication: UVEITIS
     Dosage: 500 MG, INTRAVENOUS
     Route: 042
     Dates: start: 20040211
  7. METHOTREXATE [Concomitant]
  8. FOSAMAX [Concomitant]
  9. CELEBREX [Concomitant]
  10. PREDNISONE [Concomitant]
  11. NEXIUM [Concomitant]

REACTIONS (1)
  - CEREBROVASCULAR ACCIDENT [None]
